FAERS Safety Report 4627162-5 (Version None)
Quarter: 2005Q2

REPORT INFORMATION
  Report Type: 
  Country: None (occurrence: None)
  Receive Date: 20050405
  Receipt Date: 20050330
  Transmission Date: 20051028
  Serious: Yes (Death)
  Sender: FDA-Public Use
  Company Number: JP-GLAXOSMITHKLINE-B0376468A

PATIENT
  Age: 64 Year
  Sex: Male

DRUGS (3)
  1. PAXIL [Suspect]
     Indication: DEPRESSION
     Route: 048
     Dates: end: 20050223
  2. AMLODIPINE BESYLATE [Concomitant]
     Route: 048
  3. MYSLEE [Concomitant]
     Route: 048

REACTIONS (1)
  - COMPLETED SUICIDE [None]
